FAERS Safety Report 18686916 (Version 2)
Quarter: 2021Q1

REPORT INFORMATION
  Report Type: Spontaneous
  Country: CA (occurrence: CA)
  Receive Date: 20201230
  Receipt Date: 20210107
  Transmission Date: 20210419
  Serious: Yes (Other)
  Sender: FDA-Public Use
  Company Number: CA-BEH-2020126697

PATIENT
  Age: 38 Year
  Sex: Female

DRUGS (1)
  1. ALBUMIN HUMAN (INN) [Suspect]
     Active Substance: ALBUMIN HUMAN
     Indication: FLUID REPLACEMENT
     Dosage: 3 INFUSIONS
     Route: 042

REACTIONS (2)
  - Gangrene [Unknown]
  - Peripheral ischaemia [Unknown]
